FAERS Safety Report 13374734 (Version 1)
Quarter: 2017Q1

REPORT INFORMATION
  Report Type: Spontaneous
  Country: CA (occurrence: CA)
  Receive Date: 20170327
  Receipt Date: 20170327
  Transmission Date: 20170429
  Serious: Yes (Death, Hospitalization, Other)
  Sender: FDA-Public Use
  Company Number: CA-TEVA-753021USA

PATIENT
  Age: 90 Year
  Sex: Female

DRUGS (3)
  1. HYDROMORPHONE [Suspect]
     Active Substance: HYDROMORPHONE
     Indication: PAIN
     Dosage: STANDING DOSE
     Route: 048
  2. MORPHINE [Suspect]
     Active Substance: MORPHINE
     Indication: PAIN
     Route: 048
  3. HYDROMORPHONE [Suspect]
     Active Substance: HYDROMORPHONE
     Indication: PAIN
     Dosage: AS NEEDED
     Route: 048

REACTIONS (3)
  - Drug prescribing error [Unknown]
  - Overdose [Unknown]
  - Toxicity to various agents [Fatal]
